FAERS Safety Report 24733482 (Version 2)
Quarter: 2024Q4

REPORT INFORMATION
  Report Type: Spontaneous
  Country: US (occurrence: US)
  Receive Date: 20241213
  Receipt Date: 20241231
  Transmission Date: 20250114
  Serious: Yes (Other)
  Sender: PHARMING GROUP
  Company Number: US-PHARMING-PHAUS2024001183

PATIENT

DRUGS (2)
  1. RUCONEST [Suspect]
     Active Substance: CONESTAT ALFA
     Indication: Hereditary angioedema
     Dosage: 4200 IU, PRN
     Route: 042
     Dates: start: 202403
  2. RUCONEST [Suspect]
     Active Substance: CONESTAT ALFA
     Dosage: 4200 IU, PRN
     Route: 042
     Dates: start: 202403

REACTIONS (4)
  - Head and neck cancer [Unknown]
  - Weight increased [Unknown]
  - Condition aggravated [Unknown]
  - Vascular access site complication [Unknown]
